FAERS Safety Report 8560224-9 (Version None)
Quarter: 2012Q3

REPORT INFORMATION
  Report Type: 
  Country: None (occurrence: None)
  Receive Date: 20120802
  Receipt Date: 20120731
  Transmission Date: 20120928
  Serious: Yes (Hospitalization)
  Sender: FDA-Public Use
  Company Number: FR-ROCHE-1071513

PATIENT
  Sex: Male

DRUGS (11)
  1. MABTHERA [Suspect]
     Indication: LYMPHOMA
     Route: 042
     Dates: start: 20080425, end: 20080516
  2. PREDNISOLONE [Suspect]
     Indication: LYMPHOMA
     Route: 048
     Dates: start: 20100507, end: 20100905
  3. MABTHERA [Suspect]
     Dosage: 7040 MAINTENANCE
     Route: 042
     Dates: start: 20101116, end: 20120401
  4. METHYLPREDNISOLONE [Suspect]
     Indication: PREMEDICATION
     Route: 042
     Dates: start: 20080425, end: 20080516
  5. CYCLOPHOSPHAMIDE [Suspect]
     Route: 048
     Dates: start: 20101116, end: 20120401
  6. METHYLPREDNISOLONE [Suspect]
     Route: 042
     Dates: start: 20101116, end: 20120401
  7. CYCLOPHOSPHAMIDE [Suspect]
     Indication: LYMPHOMA
     Route: 048
     Dates: start: 20100506, end: 20100905
  8. MABTHERA [Suspect]
     Route: 042
     Dates: start: 20100506, end: 20100901
  9. VINCRISTINE SULFATE [Suspect]
     Indication: LYMPHOMA
     Route: 042
     Dates: start: 20100506, end: 20100901
  10. DOXORUBICIN HYDROCHLORIDE [Suspect]
     Indication: LYMPHOMA
     Route: 042
     Dates: start: 20100506, end: 20100901
  11. METHYLPREDNISOLONE [Suspect]
     Route: 042
     Dates: start: 20100506, end: 20100901

REACTIONS (1)
  - MALIGNANT MELANOMA [None]
